FAERS Safety Report 20597195 (Version 1)
Quarter: 2022Q1

REPORT INFORMATION
  Report Type: Spontaneous
  Country: US (occurrence: US)
  Receive Date: 20220315
  Receipt Date: 20220315
  Transmission Date: 20220423
  Serious: Yes (Other)
  Sender: FDA-Public Use
  Company Number: US-PFIZER INC-202200364741

PATIENT
  Age: 59 Year
  Sex: Female

DRUGS (1)
  1. SPIRONOLACTONE [Suspect]
     Active Substance: SPIRONOLACTONE
     Dosage: UNK

REACTIONS (5)
  - Renal failure [Unknown]
  - Protein urine present [Unknown]
  - Headache [Unknown]
  - Weight increased [Unknown]
  - Weight decreased [Unknown]
